FAERS Safety Report 23087022 (Version 1)
Quarter: 2023Q4

REPORT INFORMATION
  Report Type: Spontaneous
  Country: US (occurrence: US)
  Receive Date: 20231020
  Receipt Date: 20231020
  Transmission Date: 20240109
  Serious: Yes (Other)
  Sender: FDA-Public Use
  Company Number: US-BEIGENE-BGN-2023-011724

PATIENT

DRUGS (1)
  1. BRUKINSA [Suspect]
     Active Substance: ZANUBRUTINIB
     Indication: Product used for unknown indication
     Dosage: 80 MILLIGRAM
     Route: 048
     Dates: start: 20230810

REACTIONS (4)
  - Contusion [Recovered/Resolved]
  - Stomatitis [Recovered/Resolved]
  - Eye pain [Recovered/Resolved]
  - Feeling abnormal [Recovered/Resolved]
